FAERS Safety Report 11627041 (Version 2)
Quarter: 2017Q4

REPORT INFORMATION
  Report Type: Spontaneous
  Country: US (occurrence: US)
  Receive Date: 20151013
  Receipt Date: 20171005
  Transmission Date: 20180320
  Serious: No
  Sender: FDA-Public Use
  Company Number: US-INDIVIOR-RB-075375-2015

PATIENT
  Age: 31 Year
  Sex: Male

DRUGS (3)
  1. BUPRENORPHINE GENERIC TAB [Suspect]
     Active Substance: BUPRENORPHINE
     Dosage: TOOK MORE THAN 16 MG DAILY
     Route: 060
  2. SUBOXONE [Suspect]
     Active Substance: BUPRENORPHINE HYDROCHLORIDE\NALOXONE HYDROCHLORIDE
     Indication: DRUG USE DISORDER
     Dosage: 16 MG, DAILY, FOR 3 TO 4 MONTHS
     Route: 060
     Dates: start: 2014, end: 2014
  3. BUPRENORPHINE GENERIC TAB [Suspect]
     Active Substance: BUPRENORPHINE
     Indication: DRUG USE DISORDER
     Dosage: 16 MG, DAILY
     Route: 060
     Dates: start: 201408

REACTIONS (10)
  - Nausea [Recovered/Resolved]
  - Therapy cessation [Recovered/Resolved]
  - Malaise [Recovered/Resolved]
  - Intentional product use issue [Not Recovered/Not Resolved]
  - Loss of personal independence in daily activities [Recovered/Resolved]
  - Substance abuse [Recovered/Resolved]
  - Drug dependence [Recovered/Resolved]
  - Headache [Recovered/Resolved]
  - Drug diversion [Recovered/Resolved]
  - Drug ineffective [Recovered/Resolved]

NARRATIVE: CASE EVENT DATE: 2014
